FAERS Safety Report 7768096-7 (Version None)
Quarter: 2011Q3

REPORT INFORMATION
  Report Type: 
  Country: None (occurrence: None)
  Receive Date: 20110922
  Receipt Date: 20110916
  Transmission Date: 20111222
  Serious: Yes (Other)
  Sender: FDA-Public Use
  Company Number: US-SANOFI-AVENTIS-2011SA060822

PATIENT
  Age: 74 Year
  Sex: Female

DRUGS (4)
  1. MULTAQ [Suspect]
     Indication: ATRIAL FIBRILLATION
     Route: 048
     Dates: start: 20100201
  2. SYNTHROID [Concomitant]
     Indication: HYPOTHYROIDISM
  3. ZESTRIL [Concomitant]
  4. COUMADIN [Concomitant]
     Indication: THROMBOSIS PROPHYLAXIS
     Dosage: 3MG, (MONDAY WEDNESDAY AND FRIDAY AND 4 MG ON THE OTHER DAYS), ADJUSTED ACCORDING TO HER PT LEVELS

REACTIONS (2)
  - ATRIAL FIBRILLATION [None]
  - POLLAKIURIA [None]
